FAERS Safety Report 13532552 (Version 5)
Quarter: 2018Q4

REPORT INFORMATION
  Report Type: Report from Study
  Country: PL (occurrence: PL)
  Receive Date: 20170510
  Receipt Date: 20181026
  Transmission Date: 20190204
  Serious: Yes (Hospitalization)
  Sender: FDA-Public Use
  Company Number: PL-EMD SERONO-E2B_80063827

PATIENT
  Age: 58 Year
  Sex: Female
  Weight: 79 kg

DRUGS (8)
  1. AVELUMAB [Suspect]
     Active Substance: AVELUMAB
     Dosage: 710 MG, CYCLIC
     Route: 042
     Dates: start: 20161229, end: 20161229
  2. AVELUMAB [Suspect]
     Active Substance: AVELUMAB
     Dosage: 700 MG, CYCLIC
     Route: 042
     Dates: start: 20170126, end: 20170126
  3. AVELUMAB [Suspect]
     Active Substance: AVELUMAB
     Dosage: 750 MG, CYCLIC
     Route: 042
     Dates: start: 20170209, end: 20170209
  4. AVELUMAB [Suspect]
     Active Substance: AVELUMAB
     Indication: OVARIAN CANCER
     Dosage: UNK, CYCLIC
     Route: 042
     Dates: start: 20161216, end: 20161216
  5. AVELUMAB [Suspect]
     Active Substance: AVELUMAB
     Dosage: 710 MG, CYCLIC
     Route: 042
     Dates: start: 20170223, end: 20170223
  6. PUKKA MUSHROOM GOLD [Suspect]
     Active Substance: HERBALS
     Indication: PRODUCT USED FOR UNKNOWN INDICATION
     Dosage: 7 PILLS, 1X/DAY
     Route: 048
     Dates: start: 20170223, end: 20170323
  7. AVELUMAB [Suspect]
     Active Substance: AVELUMAB
     Dosage: 720 MG, CYCLIC
     Route: 042
     Dates: start: 20170309, end: 20170309
  8. AVELUMAB [Suspect]
     Active Substance: AVELUMAB
     Dosage: 660 MG, CYCLIC
     Route: 042
     Dates: start: 20170112, end: 20170112

REACTIONS (1)
  - Drug-induced liver injury [Recovered/Resolved]

NARRATIVE: CASE EVENT DATE: 20170323
